FAERS Safety Report 5981551-5 (Version None)
Quarter: 2008Q4

REPORT INFORMATION
  Report Type: 
  Country: None (occurrence: None)
  Receive Date: 20081126
  Receipt Date: 20080220
  Transmission Date: 20090506
  Serious: Yes (Hospitalization)
  Sender: FDA-Public Use
  Company Number: 2008BH000492

PATIENT
  Age: 43 Year
  Sex: Female

DRUGS (10)
  1. DIANEAL [Suspect]
     Indication: PERITONEAL DIALYSIS
     Dosage: IP, 6 L; EVERY DAYL IP
     Route: 033
     Dates: end: 20080101
  2. DIANEAL [Suspect]
     Indication: PERITONEAL DIALYSIS
     Dosage: IP, 6 L; EVERY DAYL IP
     Route: 033
     Dates: start: 20070126
  3. DIANEAL [Suspect]
     Indication: PERITONEAL DIALYSIS
     Dosage: IP, 6 L; EVERY DAY; IP
     Route: 033
     Dates: end: 20080101
  4. DIANEAL [Suspect]
     Indication: PERITONEAL DIALYSIS
     Dosage: IP, 6 L; EVERY DAY; IP
     Route: 033
     Dates: start: 20070126
  5. HYDROCODONE BITARTRATE [Concomitant]
  6. LACTULOSE [Concomitant]
  7. AMITRIPTYLINE HCL [Concomitant]
  8. PROMETHAZINE [Concomitant]
  9. ROCALTROL [Concomitant]
  10. EPOGEN [Concomitant]

REACTIONS (1)
  - PERITONITIS BACTERIAL [None]
